FAERS Safety Report 9233469 (Version 1)
Quarter: 2013Q2

REPORT INFORMATION
  Report Type: Spontaneous
  Country: US (occurrence: US)
  Receive Date: 20130416
  Receipt Date: 20130416
  Transmission Date: 20140414
  Serious: Yes (Other)
  Sender: FDA-Public Use
  Company Number: US-PFIZER INC-2013116244

PATIENT
  Sex: Female
  Weight: 45.35 kg

DRUGS (5)
  1. NORVASC [Suspect]
     Indication: HYPERTENSION
     Dosage: 7.5 MG, 1X/DAY
  2. NORVASC [Suspect]
     Dosage: 5 MG, 2X/DAY
  3. ANTIVERT [Suspect]
     Indication: VERTIGO
     Dosage: 25 MG, 3X/DAY
     Dates: start: 2006
  4. ANTIVERT [Suspect]
     Dosage: 12.5 MG, 2X/DAY (AT A DOSE OF 25 MG BY SPLITTING THE TABLETS AND TAKING HALF TABLET TWO TIMES A DAY)
     Dates: start: 2011
  5. METOPROLOL [Concomitant]
     Indication: HYPERTENSION
     Dosage: 12.5 MG, 2X/DAY (AT 25 MG BY SPLITTING THE TABLETS AND TAKING HALF TABLET TWO TIMES A DAY)

REACTIONS (1)
  - Cerebrovascular accident [Unknown]
